FAERS Safety Report 10240305 (Version 2)
Quarter: 2014Q3

REPORT INFORMATION
  Report Type: Spontaneous
  Country: BR (occurrence: BR)
  Receive Date: 20140617
  Receipt Date: 20140822
  Transmission Date: 20150326
  Serious: Yes (Other)
  Sender: FDA-Public Use
  Company Number: PHHY2014BR073852

PATIENT
  Sex: Female
  Weight: 53 kg

DRUGS (1)
  1. GILENYA [Suspect]
     Active Substance: FINGOLIMOD HYDROCHLORIDE
     Indication: MULTIPLE SCLEROSIS
     Dosage: 1 DF, QD
     Route: 048

REACTIONS (4)
  - Pericarditis [Unknown]
  - Sinusitis [Recovered/Resolved]
  - Chest pain [Not Recovered/Not Resolved]
  - Influenza [Recovered/Resolved]
